FAERS Safety Report 11987879 (Version 1)
Quarter: 2016Q1

REPORT INFORMATION
  Report Type: Spontaneous
  Country: US (occurrence: None)
  Receive Date: 20160201
  Receipt Date: 20160201
  Transmission Date: 20160526
  Serious: Yes (Hospitalization, Other)
  Sender: FDA-Public Use
  Company Number: None

PATIENT
  Age: 32 Year
  Sex: Female
  Weight: 68.04 kg

DRUGS (1)
  1. REGLAN [Suspect]
     Active Substance: METOCLOPRAMIDE HYDROCHLORIDE
     Indication: LACTATION DISORDER
     Route: 048
     Dates: start: 20110701, end: 20120113

REACTIONS (5)
  - Anxiety [None]
  - Depression [None]
  - Insomnia [None]
  - Muscle twitching [None]
  - Suicidal ideation [None]

NARRATIVE: CASE EVENT DATE: 20120102
